FAERS Safety Report 18781935 (Version 1)
Quarter: 2021Q1

REPORT INFORMATION
  Report Type: Spontaneous
  Country: US (occurrence: US)
  Receive Date: 20210125
  Receipt Date: 20210125
  Transmission Date: 20210419
  Serious: No
  Sender: FDA-Public Use
  Company Number: None

PATIENT
  Age: 56 Year
  Sex: Male
  Weight: 193 kg

DRUGS (3)
  1. DIPHENHYDRAMINE (BENADRYL) INJECTION 50 MG [Concomitant]
     Dates: start: 20210120
  2. METHYLPREDNISOLONE SODIUM SUCCINATE (SOLU?MEDROL) PF INJECTION 20 MG [Concomitant]
     Dates: start: 20210120
  3. OPDIVO [Suspect]
     Active Substance: NIVOLUMAB
     Indication: MALIGNANT MELANOMA
     Dosage: ?          OTHER FREQUENCY:EVERY 3 WEEKS;?
     Route: 041
     Dates: start: 20201210

REACTIONS (2)
  - Chest pain [None]
  - Flank pain [None]

NARRATIVE: CASE EVENT DATE: 20210120
